FAERS Safety Report 9553681 (Version 2)
Quarter: 2013Q4

REPORT INFORMATION
  Report Type: Spontaneous
  Country: US (occurrence: US)
  Receive Date: 20130925
  Receipt Date: 20131015
  Transmission Date: 20140711
  Serious: Yes (Hospitalization)
  Sender: FDA-Public Use
  Company Number: US-VERTEX PHARMACEUTICALS INC-2013-009894

PATIENT
  Age: 31 Year
  Sex: Female
  Weight: 54.88 kg

DRUGS (7)
  1. INCIVEK [Suspect]
     Indication: HEPATITIS C
     Dosage: 750 MG, TID
     Route: 048
     Dates: start: 20130802, end: 201309
  2. RIBAVIRIN [Suspect]
     Indication: HEPATITIS C
     Dosage: 400 MG, BID
     Dates: start: 20130802, end: 201309
  3. PEGASYS [Suspect]
     Indication: HEPATITIS C
     Dosage: 180 ?G, QW
     Route: 058
     Dates: start: 20130802, end: 201309
  4. NYSTATIN [Concomitant]
  5. TRAMADOL [Concomitant]
  6. ZYRTEC [Concomitant]
  7. WELLBUTRIN [Concomitant]

REACTIONS (1)
  - Infection [Unknown]
